FAERS Safety Report 24785554 (Version 1)
Quarter: 2024Q4

REPORT INFORMATION
  Report Type: Spontaneous
  Country: US (occurrence: None)
  Receive Date: 20241227
  Receipt Date: 20241227
  Transmission Date: 20250114
  Serious: No
  Sender: Public
  Company Number: None

PATIENT
  Sex: 0

DRUGS (1)
  1. COSMETICS [Suspect]
     Active Substance: COSMETICS
     Indication: Dry skin
     Dosage: TOPICAL
     Route: 061
     Dates: start: 20080101, end: 20130116

REACTIONS (6)
  - Hypersensitivity [None]
  - Erythema [None]
  - Feeling hot [None]
  - Swelling face [None]
  - Skin swelling [None]
  - Erythema [None]

NARRATIVE: CASE EVENT DATE: 20130115
